FAERS Safety Report 17447919 (Version 1)
Quarter: 2020Q1

REPORT INFORMATION
  Report Type: Spontaneous
  Country: DK (occurrence: DK)
  Receive Date: 20200222
  Receipt Date: 20200222
  Transmission Date: 20200409
  Serious: Yes (Hospitalization)
  Sender: FDA-Public Use
  Company Number: DK-ACCORD-173189

PATIENT
  Age: 92 Year
  Sex: Male

DRUGS (7)
  1. PARACETAMOL [Concomitant]
     Active Substance: ACETAMINOPHEN
     Indication: PAIN
     Dosage: STRENGTH: 500 MG MAXIMUM OF 4 TIMES DAILY
     Route: 048
     Dates: start: 20140701
  2. OCULAC [Concomitant]
     Indication: DRY EYE
     Dosage: STRENGTH: 50 MG/ML
     Route: 050
     Dates: start: 20180614
  3. FINASTERIDE. [Concomitant]
     Active Substance: FINASTERIDE
     Indication: DYSURIA
     Dosage: STRENGTH: 5 MG
     Route: 048
     Dates: start: 20170901
  4. LANSOPRAZOLE. [Concomitant]
     Active Substance: LANSOPRAZOLE
     Indication: GASTRIC ULCER
     Dosage: STRENGTH: 30 MG
     Route: 048
     Dates: start: 20130529
  5. LATANOPROST. [Concomitant]
     Active Substance: LATANOPROST
     Indication: GLAUCOMA
     Dosage: STRENGTH: 50 MICROGRAMS / ML
     Route: 050
     Dates: start: 20130829
  6. METHOTREXATE. [Suspect]
     Active Substance: METHOTREXATE
     Indication: SKIN DISORDER
     Dosage: STRENGTH: 2.5 MG DOSE REDUCED TO 5 MG WEEKLY SINCE AUG2019
     Route: 048
     Dates: start: 20170728, end: 20191219
  7. TESTOSTERONE PARANOVA [Concomitant]
     Indication: HORMONE THERAPY
     Dosage: STRENGTH: 40 MG
     Route: 048
     Dates: start: 20170818

REACTIONS (3)
  - Off label use [Unknown]
  - Lung infiltration [Unknown]
  - Interstitial lung disease [Not Recovered/Not Resolved]

NARRATIVE: CASE EVENT DATE: 2019
